FAERS Safety Report 7045925-6 (Version None)
Quarter: 2010Q4

REPORT INFORMATION
  Report Type: 
  Country: None (occurrence: None)
  Receive Date: 20101014
  Receipt Date: 20101001
  Transmission Date: 20110411
  Serious: Yes (Hospitalization)
  Sender: FDA-Public Use
  Company Number: BR-MEDIMMUNE-MEDI-0011590

PATIENT
  Sex: Male
  Weight: 7.2 kg

DRUGS (4)
  1. SYNAGIS [Suspect]
     Indication: BRONCHOPULMONARY DYSPLASIA
     Route: 030
     Dates: start: 20100601
  2. SYNAGIS [Suspect]
  3. VENTIDE [Concomitant]
     Indication: BRONCHOPULMONARY DISEASE
     Route: 048
     Dates: start: 20090627
  4. PHENOBARBITAL [Concomitant]
     Dosage: 15 DROPS A DAY
     Route: 048
     Dates: start: 20090801

REACTIONS (7)
  - COUGH [None]
  - FATIGUE [None]
  - INFLUENZA [None]
  - NASOPHARYNGITIS [None]
  - RHINITIS [None]
  - SNEEZING [None]
  - WEIGHT DECREASED [None]
